FAERS Safety Report 25258668 (Version 1)
Quarter: 2025Q2

REPORT INFORMATION
  Report Type: Spontaneous
  Country: GR (occurrence: GR)
  Receive Date: 20250501
  Receipt Date: 20250501
  Transmission Date: 20250716
  Serious: Yes (Life-Threatening, Hospitalization, Other)
  Sender: BRISTOL-MYERS SQUIBB COMPANY
  Company Number: None

PATIENT
  Age: 81 Year
  Sex: Female

DRUGS (4)
  1. YERVOY [Suspect]
     Active Substance: IPILIMUMAB
     Indication: Mesothelioma
     Route: 042
     Dates: end: 20250218
  2. OPDIVO [Suspect]
     Active Substance: NIVOLUMAB
     Indication: Product used for unknown indication
     Route: 042
     Dates: start: 20250218, end: 20250313
  3. KEPPRA [Concomitant]
     Active Substance: LEVETIRACETAM
     Indication: Post-traumatic epilepsy
     Route: 048
     Dates: start: 20230629, end: 20250407
  4. SINTROM [Concomitant]
     Active Substance: ACENOCOUMAROL
     Indication: Atrial fibrillation

REACTIONS (1)
  - Myocarditis [Recovered/Resolved]

NARRATIVE: CASE EVENT DATE: 20250218
